FAERS Safety Report 7549207-5 (Version None)
Quarter: 2011Q2

REPORT INFORMATION
  Report Type: 
  Country: None (occurrence: None)
  Receive Date: 20110615
  Receipt Date: 20110602
  Transmission Date: 20111010
  Serious: Yes (Hospitalization, Other)
  Sender: FDA-Public Use
  Company Number: PHFR2011GB02517

PATIENT
  Sex: Male

DRUGS (5)
  1. CLOZAPINE [Suspect]
     Dosage: 400 MG, QD
  2. CLOZAPINE [Suspect]
     Indication: SCHIZOPHRENIA
     Route: 048
     Dates: start: 20010114, end: 20110121
  3. CLOZAPINE [Suspect]
     Route: 048
     Dates: start: 20110129
  4. CITALOPRAM [Concomitant]
     Indication: DEPRESSION
     Dosage: 60 MG/ DAILY
     Route: 048
  5. FLUOXETINE HCL [Concomitant]
     Indication: DEPRESSION
     Route: 048

REACTIONS (2)
  - TOOTH DISORDER [None]
  - PNEUMONIA VIRAL [None]
